FAERS Safety Report 6228689-5 (Version None)
Quarter: 2009Q2

REPORT INFORMATION
  Report Type: 
  Country: None (occurrence: None)
  Receive Date: 20090611
  Receipt Date: 20090611
  Transmission Date: 20091009
  Serious: Yes (Other)
  Sender: FDA-Public Use
  Company Number: None

PATIENT
  Sex: Male
  Weight: 104 kg

DRUGS (1)
  1. OXCARBAZEPINE [Suspect]
     Indication: EPILEPSY
     Dosage: 600MG 1-1/2 TABS AM PO; 2 TABS PM PO
     Route: 048
     Dates: start: 20090501

REACTIONS (1)
  - CONVULSION [None]
